FAERS Safety Report 16979121 (Version 1)
Quarter: 2019Q4

REPORT INFORMATION
  Report Type: Spontaneous
  Country: US (occurrence: US)
  Receive Date: 20191031
  Receipt Date: 20191031
  Transmission Date: 20200122
  Serious: No
  Sender: FDA-Public Use
  Company Number: US-CIPLA LTD.-2019US04766

PATIENT

DRUGS (2)
  1. GABAPENTIN. [Suspect]
     Active Substance: GABAPENTIN
     Indication: NEURALGIA
     Dosage: 300 MILLIGRAM, QD FOR 3 DAYS (THURSDAY, FRIDAY AND SATURDAY)
     Route: 048
     Dates: start: 20190620
  2. GABAPENTIN. [Suspect]
     Active Substance: GABAPENTIN
     Dosage: 2 DOSAGE FORM (2 CAPSULES ON SUNDAY)
     Route: 048

REACTIONS (2)
  - Rash erythematous [Not Recovered/Not Resolved]
  - Dizziness [Unknown]
